FAERS Safety Report 5471960-5 (Version None)
Quarter: 2007Q3

REPORT INFORMATION
  Report Type: 
  Country: None (occurrence: None)
  Receive Date: 20070928
  Receipt Date: 20070916
  Transmission Date: 20080115
  Serious: Yes (Other)
  Sender: FDA-Public Use
  Company Number: US-PFIZER INC-2007077358

PATIENT
  Sex: Female
  Weight: 55.909 kg

DRUGS (5)
  1. CHANTIX [Suspect]
     Indication: SMOKING CESSATION THERAPY
  2. EVISTA [Concomitant]
  3. PERIOSTAT [Concomitant]
  4. KLONOPIN [Concomitant]
  5. CHOLESTEROL- AND TRIGLYCERIDE REDUCERS [Concomitant]

REACTIONS (1)
  - ACTIVITIES OF DAILY LIVING IMPAIRED [None]
